FAERS Safety Report 23537045 (Version 1)
Quarter: 2024Q1

REPORT INFORMATION
  Report Type: Spontaneous
  Country: US (occurrence: US)
  Receive Date: 20240219
  Receipt Date: 20240219
  Transmission Date: 20240410
  Serious: No
  Sender: FDA-Public Use
  Company Number: US-GSKCCFUS-Case-01933918_AE-107509

PATIENT
  Age: 50 Year
  Sex: Male

DRUGS (1)
  1. BENLYSTA [Suspect]
     Active Substance: BELIMUMAB
     Indication: Systemic lupus erythematosus
     Dosage: UNK
     Route: 019
     Dates: start: 20140209

REACTIONS (3)
  - Dyspepsia [Recovered/Resolved]
  - Chest discomfort [Recovered/Resolved]
  - Wrong schedule [Unknown]

NARRATIVE: CASE EVENT DATE: 20140209
